FAERS Safety Report 13106288 (Version 3)
Quarter: 2017Q3

REPORT INFORMATION
  Report Type: Spontaneous
  Country: US (occurrence: US)
  Receive Date: 20170111
  Receipt Date: 20170712
  Transmission Date: 20171127
  Serious: No
  Sender: FDA-Public Use
  Company Number: US-ALKERMES INC.-ALK-2016-003919

PATIENT
  Age: 44 Year
  Sex: Female

DRUGS (1)
  1. ARISTADA [Suspect]
     Active Substance: ARIPIPRAZOLE LAUROXIL
     Indication: SCHIZOPHRENIA
     Dosage: 882 MG, QMO
     Route: 030
     Dates: start: 20160916

REACTIONS (7)
  - Therapeutic response shortened [Recovering/Resolving]
  - Pruritus [Unknown]
  - Irritability [Recovering/Resolving]
  - Hallucination, auditory [Recovering/Resolving]
  - Anxiety [Recovering/Resolving]
  - Drug ineffective [Not Recovered/Not Resolved]
  - Paranoia [Recovering/Resolving]

NARRATIVE: CASE EVENT DATE: 2016
